FAERS Safety Report 8923187 (Version 2)
Quarter: 2012Q4

REPORT INFORMATION
  Report Type: Spontaneous
  Country: US (occurrence: None)
  Receive Date: 20121115
  Receipt Date: 20121210
  Transmission Date: 20130627
  Serious: Yes (Hospitalization)
  Sender: FDA-Public Use
  Company Number: 2012US-004443

PATIENT
  Age: 78 Year
  Sex: Male
  Weight: 91 kg

DRUGS (14)
  1. OMONTYS (PEGINESATIDE) SOLUTION FOR INJECTION [Suspect]
     Indication: NEPHROGENIC ANAEMIA
     Route: 042
     Dates: start: 20120820, end: 20121019
  2. ATENOLOL (ATENOLOL) [Concomitant]
  3. TRAMADOL (TRAMADOL) [Concomitant]
  4. LANTUS (INSULIN GLARGINE) [Concomitant]
  5. PHOSLO (CALSIUM ACETATE) [Concomitant]
  6. NEPHROCAPS (ASCORBIC ACID, BIOTIN, CYANOCOBALAMIN, FOLIC ACID, NIC, NICOTINAMIDE, PANTOTHENIC ACID, PYRIDOXINE HYDROCHLORIDE, RIBOFLAVIN, THIAMINE HYDROCHLORIDE) [Concomitant]
  7. AGGRENOX (ACETYLSALICYLIC ACID, DIPYRIDAMOLE) [Concomitant]
  8. SURFAK (DOCUSATE CALCIUM) [Concomitant]
  9. REMERON (MIRTAZAPINE) [Concomitant]
  10. TRILEPTAL (OXCARBAZEPINE) [Concomitant]
  11. VITAMIN E (TOCOPHEROL) [Concomitant]
  12. LIPITOR (ATORVASTATIN CALCIUM) [Concomitant]
  13. NOVOLOG (INSULIN ASPART) [Concomitant]
  14. HEPARIN (HEPARIN) [Concomitant]

REACTIONS (7)
  - Fluid overload [None]
  - Pleural effusion [None]
  - Dyspnoea [None]
  - Rhonchi [None]
  - Hypotension [None]
  - Muscle spasms [None]
  - Haemoglobin decreased [None]
